FAERS Safety Report 8513324-3 (Version None)
Quarter: 2012Q3

REPORT INFORMATION
  Report Type: 
  Country: None (occurrence: None)
  Receive Date: 20120716
  Receipt Date: 20120703
  Transmission Date: 20120928
  Serious: Yes (Life-Threatening, Other)
  Sender: FDA-Public Use
  Company Number: SG-ROCHE-1064159

PATIENT
  Sex: Female
  Weight: 56.2 kg

DRUGS (10)
  1. WARFARIN SODIUM [Concomitant]
     Indication: ANTIPHOSPHOLIPID SYNDROME
     Route: 048
     Dates: start: 20100501
  2. CALCIUM CARBONATE [Concomitant]
     Route: 048
  3. METHOTREXATE [Concomitant]
     Indication: AUTOINFLAMMATORY DISEASE
     Route: 048
     Dates: start: 20110501, end: 20120417
  4. CLOPIDOGREL [Concomitant]
     Indication: MYOCARDIAL ISCHAEMIA
     Route: 048
     Dates: start: 20070501
  5. ALENDRONATE SODIUM [Concomitant]
     Indication: OSTEOPOROSIS
     Route: 048
  6. ANAKINRA [Suspect]
     Indication: AUTOINFLAMMATORY DISEASE
     Route: 058
     Dates: start: 20110905, end: 20120219
  7. ATORVASTATIN [Concomitant]
     Indication: HYPERLIPIDAEMIA
     Route: 048
  8. ACTEMRA [Suspect]
     Indication: AUTOINFLAMMATORY DISEASE
     Route: 041
     Dates: start: 20120303
  9. PREDNISOLONE [Concomitant]
     Indication: AUTOINFLAMMATORY DISEASE
     Route: 048
     Dates: start: 20090101
  10. LYNAE PRODUCT NOS [Concomitant]
     Indication: VITAMIN D DEFICIENCY
     Dosage: 1000 IU OF VIT D + 149 MG ELEMENTAL CALCIUM ONCE EVERY MORNING
     Route: 048

REACTIONS (8)
  - GASTRIC DISORDER [None]
  - BACTERAEMIA [None]
  - MENINGITIS [None]
  - AUTOINFLAMMATORY DISEASE [None]
  - GASTROINTESTINAL INFLAMMATION [None]
  - LIVER DISORDER [None]
  - INFLAMMATION [None]
  - LIVER ABSCESS [None]
